FAERS Safety Report 5776931-7 (Version None)
Quarter: 2008Q2

REPORT INFORMATION
  Report Type: 
  Country: None (occurrence: None)
  Receive Date: 20080618
  Receipt Date: 20080612
  Transmission Date: 20081010
  Serious: Yes (Hospitalization)
  Sender: FDA-Public Use
  Company Number: B0523308A

PATIENT
  Age: 6 Year
  Sex: Female
  Weight: 29 kg

DRUGS (5)
  1. ZOVIRAX [Suspect]
     Indication: MENINGITIS HERPES
     Route: 042
     Dates: start: 20080414, end: 20080414
  2. VANCOMYCIN [Concomitant]
  3. CLAFORAN [Concomitant]
     Dosage: 2000MG THREE TIMES PER DAY
  4. PERFALGAN [Concomitant]
  5. GLUCIDION [Concomitant]

REACTIONS (6)
  - BLISTER [None]
  - CIRCUMSTANCE OR INFORMATION CAPABLE OF LEADING TO MEDICATION ERROR [None]
  - INJECTION SITE INFLAMMATION [None]
  - INJECTION SITE IRRITATION [None]
  - SCAB [None]
  - WRONG TECHNIQUE IN DRUG USAGE PROCESS [None]
